FAERS Safety Report 7407902-2 (Version None)
Quarter: 2011Q2

REPORT INFORMATION
  Report Type: 
  Country: None (occurrence: None)
  Receive Date: 20110412
  Receipt Date: 20110405
  Transmission Date: 20111010
  Serious: No
  Sender: FDA-Public Use
  Company Number: US-PFIZER INC-2011077348

PATIENT
  Sex: Male
  Weight: 43.084 kg

DRUGS (2)
  1. INCRELEX [Suspect]
     Indication: INSULIN-LIKE GROWTH FACTOR DECREASED
     Dosage: 50 DF, 1X/DAY
     Route: 058
     Dates: start: 20110129
  2. GENOTROPIN [Suspect]
     Indication: INSULIN-LIKE GROWTH FACTOR DECREASED
     Dosage: UNK

REACTIONS (1)
  - URTICARIA [None]
